FAERS Safety Report 23232381 (Version 1)
Quarter: 2023Q4

REPORT INFORMATION
  Report Type: Spontaneous
  Country: FR (occurrence: FR)
  Receive Date: 20231127
  Receipt Date: 20231127
  Transmission Date: 20240109
  Serious: Yes (Hospitalization)
  Sender: FDA-Public Use
  Company Number: FR-AFSSAPS-RN2023001247

PATIENT
  Age: 41 Year
  Sex: Male

DRUGS (3)
  1. PROPRANOLOL [Suspect]
     Active Substance: PROPRANOLOL HYDROCHLORIDE
     Indication: Wrong patient
     Dosage: 40 MILLIGRAM
     Route: 048
     Dates: start: 20231101, end: 20231101
  2. SERTRALINE [Suspect]
     Active Substance: SERTRALINE HYDROCHLORIDE
     Indication: Wrong patient
     Dosage: 50 MILLIGRAM
     Route: 048
     Dates: start: 20231101, end: 20231101
  3. CLOZAPINE [Suspect]
     Active Substance: CLOZAPINE
     Indication: Wrong patient
     Dosage: 150 MILLIGRAM (1.5 TABLETS OF CLOZAPINE 100 MG)
     Route: 048
     Dates: start: 20231101, end: 20231101

REACTIONS (3)
  - Hypotension [Recovered/Resolved]
  - Somnolence [Recovered/Resolved]
  - Wrong patient [Recovered/Resolved]

NARRATIVE: CASE EVENT DATE: 20231101
